FAERS Safety Report 11215212 (Version 1)
Quarter: 2015Q2

REPORT INFORMATION
  Report Type: Spontaneous
  Country: US (occurrence: None)
  Receive Date: 20150608
  Receipt Date: 20150608
  Transmission Date: 20150821
  Serious: No
  Sender: FDA-Public Use
  Company Number: 2015TUS001092

PATIENT
  Sex: Female

DRUGS (1)
  1. BRINTELLIX [Suspect]
     Active Substance: VORTIOXETINE HYDROBROMIDE
     Indication: PANIC DISORDER
     Route: 048
     Dates: end: 20150111

REACTIONS (5)
  - Off label use [None]
  - Eye pain [None]
  - Ocular hyperaemia [None]
  - Eye irritation [None]
  - Dry eye [None]
